FAERS Safety Report 9902230 (Version 3)
Quarter: 2014Q2

REPORT INFORMATION
  Report Type: Spontaneous
  Country: CH (occurrence: CH)
  Receive Date: 20140217
  Receipt Date: 20140507
  Transmission Date: 20141212
  Serious: Yes (Hospitalization)
  Sender: FDA-Public Use
  Company Number: CH-JNJFOC-20140204074

PATIENT
  Age: 76 Year
  Sex: Female

DRUGS (21)
  1. DOXORUBICIN HYDROCLORIDE [Suspect]
     Indication: CHRONIC LYMPHOCYTIC LEUKAEMIA
     Dosage: REGIMEN #1
     Route: 042
  2. BENDAMUSTINE HYDROCHLORIDE [Suspect]
     Indication: CHRONIC LYMPHOCYTIC LEUKAEMIA
     Route: 042
     Dates: start: 20140121
  3. PREDNISOLONE [Suspect]
     Indication: CHRONIC LYMPHOCYTIC LEUKAEMIA
     Dosage: REGIMEN #1
     Route: 065
     Dates: start: 20140121
  4. OBINUTUZUMAB [Suspect]
     Indication: CHRONIC LYMPHOCYTIC LEUKAEMIA
     Dosage: REGIMEN #1
     Route: 042
     Dates: start: 20140121
  5. VINCRISTIN [Suspect]
     Indication: CHRONIC LYMPHOCYTIC LEUKAEMIA
     Dosage: REGIMEN #1
     Route: 065
  6. CYCLOPHOSPHAMIDE [Suspect]
     Indication: CHRONIC LYMPHOCYTIC LEUKAEMIA
     Dosage: REGIMEN #1
     Route: 065
  7. PANTOZOL [Concomitant]
     Route: 065
     Dates: start: 20140218
  8. PANTOZOL [Concomitant]
     Route: 065
     Dates: start: 20120717, end: 20140121
  9. ACIDUM FOLICUM [Concomitant]
     Route: 048
     Dates: start: 20140125
  10. ASPIRIN CARDIO [Concomitant]
     Route: 048
     Dates: start: 20140121
  11. BACTRIM [Concomitant]
     Route: 048
     Dates: start: 20140121
  12. CALCIMAGON-D3 [Concomitant]
     Route: 048
  13. DAFALGAN [Concomitant]
     Dates: start: 20140121
  14. KYTRIL [Concomitant]
     Indication: PREMEDICATION
     Route: 048
     Dates: start: 20140121
  15. SPIRICORT [Concomitant]
     Route: 048
     Dates: start: 20140120
  16. CIPROFLOXACIN [Concomitant]
     Route: 048
     Dates: start: 20140321
  17. LISINOPRIL [Concomitant]
     Route: 048
  18. MOVICOL [Concomitant]
     Route: 048
  19. PROCTO-GLYVENOL [Concomitant]
     Route: 048
  20. TRANSIPEG [Concomitant]
     Route: 065
  21. PASPERTIN [Concomitant]
     Route: 065
     Dates: start: 20140121

REACTIONS (2)
  - Tumour lysis syndrome [Recovered/Resolved]
  - Off label use [Unknown]
